FAERS Safety Report 6574328-3 (Version None)
Quarter: 2010Q1

REPORT INFORMATION
  Report Type: 
  Country: None (occurrence: None)
  Receive Date: 20100201
  Receipt Date: 20100120
  Transmission Date: 20100710
  Serious: Yes (Other)
  Sender: FDA-Public Use
  Company Number: 220001M10DEU

PATIENT
  Age: 70 Year
  Sex: Male

DRUGS (1)
  1. SAIZEN [Suspect]
     Indication: HYPOPITUITARISM

REACTIONS (1)
  - COLON CANCER [None]
